FAERS Safety Report 5241807-0 (Version None)
Quarter: 2007Q1

REPORT INFORMATION
  Report Type: 
  Country: None (occurrence: None)
  Receive Date: 20061208
  Receipt Date: 20050822
  Transmission Date: 20070707
  Serious: Yes (Other)
  Sender: FDA-Public Use
  Company Number: 2005UW12438

PATIENT
  Age: 57 Year
  Sex: Female
  Weight: 90.718 kg

DRUGS (4)
  1. NEXIUM [Suspect]
     Indication: GASTROOESOPHAGEAL REFLUX DISEASE
     Dosage: 40 MG BID PO
     Route: 048
  2. CRESTOR [Suspect]
     Dosage: 10 MG QD PO
     Route: 048
  3. CARAFATE [Concomitant]
  4. HYTRIN [Concomitant]

REACTIONS (3)
  - ARTHRALGIA [None]
  - FATIGUE [None]
  - WEIGHT INCREASED [None]
